FAERS Safety Report 21360370 (Version 11)
Quarter: 2024Q2

REPORT INFORMATION
  Report Type: Other
  Country: DE (occurrence: None)
  Receive Date: 20220921
  Receipt Date: 20240413
  Transmission Date: 20240715
  Serious: No
  Sender: FDA-Public Use
  Company Number: DE-ROCHE-3068881

PATIENT
  Age: 27 Year
  Sex: Female

DRUGS (20)
  1. OCREVUS [Suspect]
     Active Substance: OCRELIZUMAB
     Indication: Relapsing multiple sclerosis
     Route: 042
     Dates: start: 20220318
  2. OCREVUS [Suspect]
     Active Substance: OCRELIZUMAB
     Route: 042
     Dates: start: 20220914
  3. DIENOGEST [Concomitant]
     Active Substance: DIENOGEST
     Indication: Endometriosis
     Route: 048
     Dates: start: 202105
  4. CHOLECALCIFEROL [Concomitant]
     Active Substance: CHOLECALCIFEROL
     Indication: Prophylaxis
     Route: 048
     Dates: start: 202004
  5. FLUTICASONE PROPIONATE\SALMETEROL XINAFOATE [Concomitant]
     Active Substance: FLUTICASONE PROPIONATE\SALMETEROL XINAFOATE
     Indication: Asthma
     Dates: start: 2014
  6. PANTOPRAZOLE SODIUM [Concomitant]
     Active Substance: PANTOPRAZOLE SODIUM
     Indication: Prophylaxis
     Route: 048
     Dates: start: 20220217
  7. FERROUS GLUCONATE [Concomitant]
     Active Substance: FERROUS GLUCONATE
     Indication: Iron deficiency
     Route: 048
     Dates: start: 2020
  8. FOLIC ACID [Concomitant]
     Active Substance: FOLIC ACID
     Indication: Prophylaxis
     Route: 048
     Dates: start: 2020
  9. SELEN LOGES [Concomitant]
     Indication: Prophylaxis
     Route: 048
     Dates: start: 2020
  10. BISOPROLOL FUMARATE [Concomitant]
     Active Substance: BISOPROLOL FUMARATE
     Indication: Tachycardia
     Dosage: DOSE: 1.25?DOSE FREQUENCY: PRN (AS NEEDED)
     Route: 048
     Dates: start: 20230609
  11. PREGABALIN [Concomitant]
     Active Substance: PREGABALIN
     Dosage: DOSE: 125 INCREASING?DOSE FREQUENCY: QD (EVERY DAY)
     Route: 048
     Dates: start: 20230309
  12. PREDNISOLONE [Concomitant]
     Active Substance: PREDNISOLONE
     Route: 042
     Dates: start: 20220318, end: 20220318
  13. PREDNISOLONE [Concomitant]
     Active Substance: PREDNISOLONE
     Route: 042
     Dates: start: 20220914, end: 20220914
  14. EBASTINE [Concomitant]
     Active Substance: EBASTINE
     Route: 048
     Dates: start: 20220317, end: 20220319
  15. EBASTINE [Concomitant]
     Active Substance: EBASTINE
     Route: 048
     Dates: start: 20220331, end: 20220402
  16. EBASTINE [Concomitant]
     Active Substance: EBASTINE
     Route: 048
     Dates: start: 20220913, end: 20220915
  17. EBASTINE [Concomitant]
     Active Substance: EBASTINE
     Dosage: 2 TIMES A DAY FOR 3 DAYS, START 1 DAY BEFOREINFUSION
     Route: 048
     Dates: start: 20230315, end: 20230317
  18. EBASTINE [Concomitant]
     Active Substance: EBASTINE
     Dosage: 2 TIMES A DAY FOR 3 DAYS, START 1 DAY BEFOREINFUSION
     Route: 048
     Dates: start: 20230920, end: 20230922
  19. VOLON [Concomitant]
     Dosage: DOSE FREQUENCY: ONCE
     Route: 042
     Dates: start: 20220401, end: 20220401
  20. VOLON [Concomitant]
     Route: 042
     Dates: start: 20230316, end: 20230316

REACTIONS (8)
  - Infusion related reaction [Recovered/Resolved]
  - Red blood cell count increased [Not Recovered/Not Resolved]
  - White blood cell count increased [Not Recovered/Not Resolved]
  - Blood creatinine increased [Recovered/Resolved]
  - Gamma-glutamyltransferase increased [Recovered/Resolved]
  - Tachycardia [Not Recovered/Not Resolved]
  - COVID-19 [Recovered/Resolved]
  - Upper respiratory tract infection [Recovered/Resolved]

NARRATIVE: CASE EVENT DATE: 20220318
